FAERS Safety Report 8512523-4 (Version None)
Quarter: 2012Q3

REPORT INFORMATION
  Report Type: 
  Country: None (occurrence: None)
  Receive Date: 20120716
  Receipt Date: 20120706
  Transmission Date: 20120928
  Serious: Yes (Other)
  Sender: FDA-Public Use
  Company Number: JP-GLAXOSMITHKLINE-B0813950A

PATIENT
  Age: 76 Year
  Sex: Male

DRUGS (7)
  1. REQUIP [Suspect]
     Dosage: .25MG PER DAY
     Route: 048
  2. PHENYTOIN SODIUM [Concomitant]
     Indication: CONVULSION
  3. REQUIP [Suspect]
     Dosage: .75MG PER DAY
     Route: 048
  4. DIAZEPAM [Concomitant]
     Indication: CONVULSION
  5. REQUIP [Suspect]
     Indication: APATHY
     Dosage: .25MG PER DAY
     Route: 048
  6. REQUIP [Suspect]
     Dosage: .125MG PER DAY
     Route: 048
  7. AMANTADINE HCL [Concomitant]
     Indication: COGNITIVE DISORDER
     Dosage: 100MG PER DAY

REACTIONS (10)
  - AGITATION [None]
  - DISINHIBITION [None]
  - OFF LABEL USE [None]
  - AGGRESSION [None]
  - SPEECH DISORDER [None]
  - APHASIA [None]
  - SCREAMING [None]
  - CONVULSION [None]
  - DELIRIUM [None]
  - LOGORRHOEA [None]
